FAERS Safety Report 24304211 (Version 1)
Quarter: 2024Q3

REPORT INFORMATION
  Report Type: Spontaneous
  Country: GB (occurrence: GB)
  Receive Date: 20240910
  Receipt Date: 20240910
  Transmission Date: 20241017
  Serious: Yes (Other)
  Sender: TEVA
  Company Number: GB-MHRA-EMIS-1369-d2004f16-1319-45cf-b102-6af27a9be97b

PATIENT
  Age: 77 Year
  Sex: Female
  Weight: 74 kg

DRUGS (3)
  1. AMLODIPINE [Suspect]
     Active Substance: AMLODIPINE BESYLATE
     Indication: Essential hypertension
     Dosage: (REPLACES ATENOLOL AS ADVISED BY CARDIOLOGY),
     Route: 065
     Dates: start: 20240812
  2. AMLODIPINE [Concomitant]
     Active Substance: AMLODIPINE BESYLATE
     Indication: Essential hypertension
     Dosage: (REPLACES ATENOLOL AS ADVISED BY CARDIOLOGY),
     Dates: start: 20240704
  3. NITROFURANTOIN [Concomitant]
     Active Substance: NITROFURANTOIN
     Indication: Adverse drug reaction
     Dates: start: 20240708, end: 20240806

REACTIONS (1)
  - Joint swelling [Unknown]

NARRATIVE: CASE EVENT DATE: 20240814
